FAERS Safety Report 6329875-6 (Version None)
Quarter: 2009Q3

REPORT INFORMATION
  Report Type: 
  Country: None (occurrence: None)
  Receive Date: 20090825
  Receipt Date: 20090817
  Transmission Date: 20100115
  Serious: Yes (Hospitalization)
  Sender: FDA-Public Use
  Company Number: 356327

PATIENT
  Age: 64 Year
  Sex: Male

DRUGS (1)
  1. VANCOMYCIN [Suspect]
     Indication: DRUG USE FOR UNKNOWN INDICATION

REACTIONS (10)
  - BLOOD PRESSURE SYSTOLIC DECREASED [None]
  - BRAIN NATRIURETIC PEPTIDE INCREASED [None]
  - CARDIAC FAILURE ACUTE [None]
  - DRUG RASH WITH EOSINOPHILIA AND SYSTEMIC SYMPTOMS [None]
  - EJECTION FRACTION DECREASED [None]
  - ELECTROCARDIOGRAM T WAVE INVERSION [None]
  - HEART RATE INCREASED [None]
  - HYPOKINESIA [None]
  - MYOCARDITIS [None]
  - SCAR [None]
